FAERS Safety Report 4594844-3 (Version None)
Quarter: 2005Q1

REPORT INFORMATION
  Report Type: 
  Country: None (occurrence: None)
  Receive Date: 20050223
  Receipt Date: 20050216
  Transmission Date: 20050727
  Serious: Yes (Other)
  Sender: FDA-Public Use
  Company Number: GBWYE433617FEB05

PATIENT
  Age: 47 Year
  Sex: Male

DRUGS (2)
  1. EFFEXOR XR [Suspect]
     Indication: DEPRESSION
     Dates: start: 20020801, end: 20040601
  2. EFFEXOR XR [Suspect]
     Indication: DEPRESSION
     Dates: start: 20050106

REACTIONS (3)
  - ATRIOVENTRICULAR BLOCK FIRST DEGREE [None]
  - ELECTROCARDIOGRAM PQ INTERVAL PROLONGED [None]
  - ELECTROCARDIOGRAM PR PROLONGATION [None]
